FAERS Safety Report 18895206 (Version 1)
Quarter: 2021Q1

REPORT INFORMATION
  Report Type: Other
  Country: CA (occurrence: CA)
  Receive Date: 20210216
  Receipt Date: 20210216
  Transmission Date: 20210420
  Serious: Yes (Death, Hospitalization)
  Sender: FDA-Public Use
  Company Number: CA-CELLTRION INC.-2021CA001689

PATIENT

DRUGS (3)
  1. RITUXIMAB (UNKNOWN) [Suspect]
     Active Substance: RITUXIMAB
     Indication: BONE MARROW TRANSPLANT
  2. LANTUS [Concomitant]
     Active Substance: INSULIN GLARGINE
  3. RITUXIMAB (UNKNOWN) [Suspect]
     Active Substance: RITUXIMAB
     Indication: GRAFT VERSUS HOST DISEASE
     Dosage: 1 EVERY 1 WEEK
     Route: 042

REACTIONS (5)
  - Disease progression [Fatal]
  - Intentional product use issue [Fatal]
  - Sepsis [Fatal]
  - Vascular device infection [Fatal]
  - Off label use [Fatal]
